FAERS Safety Report 9278133 (Version 2)
Quarter: 2013Q2

REPORT INFORMATION
  Report Type: Spontaneous
  Country: US (occurrence: US)
  Receive Date: 20130508
  Receipt Date: 20130603
  Transmission Date: 20140414
  Serious: No
  Sender: FDA-Public Use
  Company Number: US-ASTELLAS-2013US004742

PATIENT
  Sex: Male
  Weight: 79 kg

DRUGS (1)
  1. PROGRAF [Suspect]
     Indication: RENAL TRANSPLANT
     Dosage: 3.5 MG, UID/QD
     Route: 048
     Dates: start: 2009

REACTIONS (1)
  - No adverse event [Unknown]
